FAERS Safety Report 23989705 (Version 1)
Quarter: 2024Q2

REPORT INFORMATION
  Report Type: Report from Study
  Country: US (occurrence: US)
  Receive Date: 20240619
  Receipt Date: 20240619
  Transmission Date: 20240716
  Serious: Yes (Disabling)
  Sender: FDA-Public Use
  Company Number: US-AMGEN-USASL2024116572

PATIENT
  Age: 71 Year
  Sex: Female

DRUGS (2)
  1. TAVNEOS [Suspect]
     Active Substance: AVACOPAN
     Indication: Granulomatosis with polyangiitis
     Dosage: 2 DOSAGE FORM, BID (2 CAP PO BID CF )
     Route: 048
     Dates: start: 20240412, end: 2024
  2. TAVNEOS [Suspect]
     Active Substance: AVACOPAN
     Dosage: 30 MILLIGRAM, BID (3 CAPS TWICE DAILY)
     Route: 048
     Dates: start: 2024, end: 20240612

REACTIONS (4)
  - Aphasia [Unknown]
  - Diarrhoea [Unknown]
  - Adverse event [Unknown]
  - Off label use [Unknown]

NARRATIVE: CASE EVENT DATE: 20240101
